FAERS Safety Report 6608734-5 (Version None)
Quarter: 2010Q1

REPORT INFORMATION
  Report Type: 
  Country: None (occurrence: None)
  Receive Date: 20100301
  Receipt Date: 20100219
  Transmission Date: 20100710
  Serious: Yes (Other)
  Sender: FDA-Public Use
  Company Number: PHEH2009US18747

PATIENT
  Sex: Male
  Weight: 62.2 kg

DRUGS (12)
  1. GLEEVEC [Suspect]
     Indication: CHRONIC MYELOID LEUKAEMIA
     Dosage: 400 MG, DAILY
     Route: 048
     Dates: start: 20020207
  2. ASPIRIN [Concomitant]
     Dosage: 81 MG, QD
  3. PRAVASTATIN [Concomitant]
     Dosage: 40 MG, QHS
  4. COREG [Concomitant]
     Dosage: 3.125 MG, Q12H
  5. BACLOFEN [Concomitant]
     Indication: MUSCLE SPASMS
     Dosage: 5 MG, PRN
  6. VALTREX [Concomitant]
     Dosage: 500 MG, QD
  7. FLOMAX [Concomitant]
     Dosage: 0.4 MG, QD
  8. PLAVIX [Concomitant]
     Dosage: 75 MG, QD
  9. ARANESP [Concomitant]
     Indication: ANAEMIA
     Dosage: UNK, UNK
     Dates: start: 20060315
  10. IRON [Concomitant]
     Dosage: UNK, UNK
  11. CLARITIN [Concomitant]
     Dosage: 10 MG, QD
  12. COLCHICINE [Concomitant]
     Dosage: 0.6 MG, PRN

REACTIONS (20)
  - AORTIC CALCIFICATION [None]
  - APPENDICECTOMY [None]
  - BLADDER LESION EXCISION [None]
  - BLADDER TRANSITIONAL CELL CARCINOMA [None]
  - BLINDNESS [None]
  - CAROTID ENDARTERECTOMY [None]
  - CEREBRAL INFARCTION [None]
  - CORONARY ARTERIAL STENT INSERTION [None]
  - HAEMODIALYSIS [None]
  - MUSCLE SPASMS [None]
  - NEPHRECTOMY [None]
  - NEUROPATHY PERIPHERAL [None]
  - OESOPHAGEAL DILATION PROCEDURE [None]
  - OESOPHAGEAL STENOSIS [None]
  - PEPTIC ULCER [None]
  - PERIPHERAL VASCULAR DISORDER [None]
  - RENAL CANCER [None]
  - RENAL FAILURE [None]
  - RENAL FAILURE CHRONIC [None]
  - VITAMIN B12 DEFICIENCY [None]
